FAERS Safety Report 8043011-X (Version None)
Quarter: 2012Q1

REPORT INFORMATION
  Report Type: 
  Country: None (occurrence: None)
  Receive Date: 20120112
  Receipt Date: 20120106
  Transmission Date: 20120608
  Serious: Yes (Other)
  Sender: FDA-Public Use
  Company Number: PHHY2012CA002097

PATIENT
  Sex: Male

DRUGS (2)
  1. ZOLEDRONOC ACID [Suspect]
     Indication: OSTEOPOROSIS
     Dosage: UNK
     Route: 042
     Dates: start: 20101115
  2. ENBREL [Concomitant]
     Indication: ARTHRITIS

REACTIONS (9)
  - TOOTH INFECTION [None]
  - PAIN IN EXTREMITY [None]
  - LIMB DISCOMFORT [None]
  - WOUND INFECTION [None]
  - BACK PAIN [None]
  - EYE DISORDER [None]
  - SCIATICA [None]
  - INFLUENZA [None]
  - CATARACT [None]
